FAERS Safety Report 7904369-2 (Version None)
Quarter: 2011Q4

REPORT INFORMATION
  Report Type: 
  Country: None (occurrence: None)
  Receive Date: 20111109
  Receipt Date: 20111031
  Transmission Date: 20120403
  Serious: Yes (Other)
  Sender: FDA-Public Use
  Company Number: US-BAYER-201036097NA

PATIENT
  Sex: Female
  Weight: 53.515 kg

DRUGS (3)
  1. YASMIN [Suspect]
  2. YAZ [Suspect]
  3. DROSPIRENONE AND ETHINYL ESTRADIOL [Suspect]
     Route: 048

REACTIONS (4)
  - CHOLECYSTECTOMY [None]
  - SCAR [None]
  - FLATULENCE [None]
  - ABDOMINAL DISTENSION [None]
